FAERS Safety Report 10045435 (Version 1)
Quarter: 2014Q1

REPORT INFORMATION
  Report Type: Spontaneous
  Country: US (occurrence: None)
  Receive Date: 20140306
  Receipt Date: 20140306
  Transmission Date: 20141002
  Serious: Yes (Hospitalization)
  Sender: FDA-Public Use
  Company Number: 163-21880-13060997

PATIENT
  Age: 80 Year
  Sex: Female

DRUGS (9)
  1. REVLIMID [Suspect]
     Indication: MYELODYSPLASTIC SYNDROME
     Dosage: 10 MG, 28 IN 28 D, PO?TEMPORARILY INTERRUPTED
     Route: 048
     Dates: start: 20130129
  2. ACETAMINOPHEN (PARACETAMOL) [Concomitant]
  3. CALCIUM PLUS VITAMIN D (CALCIUM D3 ^STADA^) [Concomitant]
  4. FOLIC ACID (FOLIC ACID) [Concomitant]
  5. GENTLE IRON [Concomitant]
  6. LASIX (FUROSEMIDE) [Concomitant]
  7. MULTIVITAMINS (MULTIVITAMINS) [Concomitant]
  8. OMEPRAZOLE (OMEPRAZOLE) [Concomitant]
  9. QUINAPRIL HCL (QUINAPRIL HYDROCHLORIDE) [Concomitant]

REACTIONS (1)
  - Sepsis [None]
